FAERS Safety Report 4602377-0 (Version None)
Quarter: 2005Q1

REPORT INFORMATION
  Report Type: 
  Country: None (occurrence: None)
  Receive Date: 20050307
  Receipt Date: 20050216
  Transmission Date: 20050727
  Serious: Yes (Hospitalization)
  Sender: FDA-Public Use
  Company Number: A01200500961

PATIENT
  Age: 65 Year
  Sex: Male
  Weight: 105 kg

DRUGS (15)
  1. PLAVIX [Suspect]
     Indication: CORONARY ARTERY DISEASE
     Dosage: 75 MG QD - ORAL
     Route: 048
     Dates: start: 20040914
  2. LOVENOX [Suspect]
     Dosage: INTRAVEOUS NOS
     Route: 042
     Dates: start: 20040914, end: 20040914
  3. ASPIRIN [Suspect]
     Indication: CORONARY ARTERY DISEASE
     Dosage: 325 MG QD - ORAL
  4. CELEBREX [Suspect]
     Indication: ARTHRALGIA
     Dosage: 200 MG QD - ORAL
     Route: 048
  5. INTEGRILIN [Suspect]
     Indication: CORONARY ARTERY DISEASE
     Dosage: UNKNOWN
     Route: 065
     Dates: start: 20040914, end: 20040914
  6. ISOSORBIDE MONONITRATE [Concomitant]
  7. LISINOPRIL [Concomitant]
  8. ATENOLOL [Concomitant]
  9. ATORVASTATIN CALCIUM [Concomitant]
  10. TERAZOSIN HYDROCHLORIDE [Concomitant]
  11. PANTOPRAZOLE SODIUM [Concomitant]
  12. ZOLMITRIPTAN [Concomitant]
  13. MULTI-VITAMINS [Concomitant]
  14. GLUCOSAMINE CHONDROITIN [Concomitant]
  15. SAW PALMETTO [Concomitant]

REACTIONS (4)
  - CHROMATURIA [None]
  - INTUBATION COMPLICATION [None]
  - MALLORY-WEISS SYNDROME [None]
  - OESOPHAGITIS [None]
